FAERS Safety Report 5990766-1 (Version None)
Quarter: 2008Q4

REPORT INFORMATION
  Report Type: 
  Country: None (occurrence: None)
  Receive Date: 20081209
  Receipt Date: 20081124
  Transmission Date: 20090506
  Serious: Yes (Hospitalization)
  Sender: FDA-Public Use
  Company Number: KV200800576

PATIENT
  Age: 79 Year
  Sex: Female

DRUGS (10)
  1. MORPHINE SULFATE [Suspect]
     Indication: DRUG USE FOR UNKNOWN INDICATION
     Dosage: ORAL
     Route: 048
  2. ISOSORBIDE MONONITRATE [Concomitant]
  3. POTASSIUM CHLORIDE [Concomitant]
  4. MAXZIDE [Concomitant]
  5. METOPROLOL TARTRATE [Concomitant]
  6. XANAX [Concomitant]
  7. DOXAZOSIN (DOXAZOSIN) [Concomitant]
  8. COZAAR [Concomitant]
  9. NITROGLYCERIN [Concomitant]
  10. THYROID THERAPY [Concomitant]

REACTIONS (4)
  - CHEST PAIN [None]
  - CORONARY ARTERY DISEASE [None]
  - NO THERAPEUTIC RESPONSE [None]
  - PRODUCT QUALITY ISSUE [None]
